FAERS Safety Report 24312399 (Version 2)
Quarter: 2024Q3

REPORT INFORMATION
  Report Type: Spontaneous
  Country: GR (occurrence: GR)
  Receive Date: 20240912
  Receipt Date: 20240925
  Transmission Date: 20241017
  Serious: Yes (Hospitalization)
  Sender: SANDOZ
  Company Number: GR-ROCHE-2528781

PATIENT
  Sex: Female
  Weight: 60 kg

DRUGS (143)
  1. ALBUMIN HUMAN [Suspect]
     Active Substance: ALBUMIN HUMAN
     Indication: Anaemia
     Dosage: 100 MG, CYCLIC (50 MG X2)
     Route: 042
     Dates: start: 20200110
  2. ALBUMIN HUMAN [Suspect]
     Active Substance: ALBUMIN HUMAN
     Indication: Non-Hodgkin^s lymphoma
     Dosage: 100 MG, CYCLIC (50 MG X2)
     Route: 042
     Dates: start: 20200110
  3. ALBUMIN HUMAN [Suspect]
     Active Substance: ALBUMIN HUMAN
     Indication: Diffuse large B-cell lymphoma
     Dosage: 1 CYLCE 50MG X2
     Route: 042
     Dates: start: 20200110, end: 20200113
  4. ALBUMIN HUMAN [Suspect]
     Active Substance: ALBUMIN HUMAN
     Indication: Hypertension
  5. ALBUMIN HUMAN [Suspect]
     Active Substance: ALBUMIN HUMAN
     Indication: Leukopenia
  6. ALDACTONE [Suspect]
     Active Substance: SPIRONOLACTONE
     Indication: Non-Hodgkin^s lymphoma
     Dosage: 100 MG (1 CYCLE)
     Route: 048
     Dates: start: 20200105, end: 20200112
  7. ALDACTONE [Suspect]
     Active Substance: SPIRONOLACTONE
     Indication: Anaemia
     Dosage: UNK
     Route: 042
  8. ALDACTONE [Suspect]
     Active Substance: SPIRONOLACTONE
     Indication: Hypertension
     Dosage: UNK
     Route: 048
  9. ALDACTONE [Suspect]
     Active Substance: SPIRONOLACTONE
     Indication: Diffuse large B-cell lymphoma
  10. ALDACTONE [Suspect]
     Active Substance: SPIRONOLACTONE
     Indication: Leukopenia
  11. CYTARABINE [Suspect]
     Active Substance: CYTARABINE
     Indication: Non-Hodgkin^s lymphoma
     Dosage: 2 CYCLES
     Route: 042
     Dates: start: 20191123, end: 20200113
  12. CYTARABINE [Suspect]
     Active Substance: CYTARABINE
     Dosage: UNK
     Route: 042
  13. CYTARABINE [Suspect]
     Active Substance: CYTARABINE
     Indication: Diffuse large B-cell lymphoma
     Dosage: UNK
     Route: 058
  14. CYCLOPHOSPHAMIDE\DOXORUBICIN\PREDNISONE\VINCRISTINE [Suspect]
     Active Substance: CYCLOPHOSPHAMIDE\DOXORUBICIN\PREDNISONE\VINCRISTINE
     Indication: Diffuse large B-cell lymphoma
     Dosage: 8 CYCLES
     Route: 065
     Dates: start: 20190513, end: 20191013
  15. CYCLOPHOSPHAMIDE\DOXORUBICIN\PREDNISONE\VINCRISTINE [Suspect]
     Active Substance: CYCLOPHOSPHAMIDE\DOXORUBICIN\PREDNISONE\VINCRISTINE
     Dosage: UNK
     Route: 065
     Dates: start: 20191013
  16. CISPLATIN [Suspect]
     Active Substance: CISPLATIN
     Indication: Diffuse large B-cell lymphoma
     Dosage: 38 MG, CYCLIC (2 CYCLES)
     Route: 042
     Dates: start: 20191119, end: 20200113
  17. CISPLATIN [Suspect]
     Active Substance: CISPLATIN
     Dosage: 38 MG, CYCLIC (2 CYCLES)
     Route: 042
     Dates: start: 20200113
  18. CISPLATIN [Suspect]
     Active Substance: CISPLATIN
     Dosage: 2 CYCLES
     Route: 042
     Dates: start: 20190119, end: 20200113
  19. CISPLATIN [Suspect]
     Active Substance: CISPLATIN
     Indication: Non-Hodgkin^s lymphoma
     Dosage: UNK
     Route: 065
  20. CISPLATIN [Suspect]
     Active Substance: CISPLATIN
     Dosage: UNK
     Route: 065
  21. CISPLATIN [Suspect]
     Active Substance: CISPLATIN
     Route: 065
  22. CISPLATIN [Suspect]
     Active Substance: CISPLATIN
     Route: 065
  23. CUBICIN [Suspect]
     Active Substance: DAPTOMYCIN
     Indication: Anaemia
     Dosage: 1 CYCLE
     Route: 042
     Dates: start: 20200102, end: 20200113
  24. CUBICIN [Suspect]
     Active Substance: DAPTOMYCIN
     Indication: Diffuse large B-cell lymphoma
     Dosage: 350 MG, CYCLIC
     Route: 042
     Dates: start: 20200113
  25. CUBICIN [Suspect]
     Active Substance: DAPTOMYCIN
     Indication: Diffuse large B-cell lymphoma
     Dosage: UNK
     Route: 058
  26. CUBICIN [Suspect]
     Active Substance: DAPTOMYCIN
     Indication: Hypertension
     Dosage: UNK
     Route: 065
  27. CUBICIN [Suspect]
     Active Substance: DAPTOMYCIN
     Indication: Non-Hodgkin^s lymphoma
     Dosage: UNK
     Route: 065
  28. CUBICIN [Suspect]
     Active Substance: DAPTOMYCIN
     Indication: Anaemia
     Route: 065
  29. CUBICIN [Suspect]
     Active Substance: DAPTOMYCIN
     Indication: Leukopenia
  30. DOXORUBICIN HYDROCHLORIDE [Suspect]
     Active Substance: DOXORUBICIN HYDROCHLORIDE
     Dosage: 8 CYCLES
     Route: 042
     Dates: start: 20190513, end: 20200124
  31. DOXORUBICIN HYDROCHLORIDE [Suspect]
     Active Substance: DOXORUBICIN HYDROCHLORIDE
     Indication: Non-Hodgkin^s lymphoma
     Dosage: UNK
     Route: 042
  32. DOXORUBICIN HYDROCHLORIDE [Suspect]
     Active Substance: DOXORUBICIN HYDROCHLORIDE
     Route: 042
  33. CANCIDAS [Suspect]
     Active Substance: CASPOFUNGIN ACETATE
     Indication: Leukopenia
     Dosage: 50 MG
     Route: 042
     Dates: start: 20200113
  34. CANCIDAS [Suspect]
     Active Substance: CASPOFUNGIN ACETATE
     Indication: Non-Hodgkin^s lymphoma
     Dosage: 50 MG, UNKNOWN
     Route: 042
     Dates: start: 20200105, end: 20200113
  35. CANCIDAS [Suspect]
     Active Substance: CASPOFUNGIN ACETATE
     Indication: Diffuse large B-cell lymphoma
     Dosage: UNK
     Route: 065
  36. CANCIDAS [Suspect]
     Active Substance: CASPOFUNGIN ACETATE
     Indication: Hypertension
     Dosage: UNK
     Route: 065
  37. CANCIDAS [Suspect]
     Active Substance: CASPOFUNGIN ACETATE
     Indication: Anaemia
  38. CHLORPHENIRAMINE MALEATE [Suspect]
     Active Substance: CHLORPHENIRAMINE MALEATE
     Indication: Non-Hodgkin^s lymphoma
     Dosage: 1 CYCLE
     Route: 048
     Dates: start: 20200110, end: 20200112
  39. CHLORPHENIRAMINE MALEATE [Suspect]
     Active Substance: CHLORPHENIRAMINE MALEATE
     Indication: Leukopenia
     Dosage: UNK
     Route: 042
  40. CHLORPHENIRAMINE MALEATE [Suspect]
     Active Substance: CHLORPHENIRAMINE MALEATE
     Indication: Anaemia
  41. CHLORPHENIRAMINE MALEATE [Suspect]
     Active Substance: CHLORPHENIRAMINE MALEATE
     Indication: Diffuse large B-cell lymphoma
  42. CHLORPHENIRAMINE MALEATE [Suspect]
     Active Substance: CHLORPHENIRAMINE MALEATE
     Indication: Hypertension
  43. CYTARABINE [Suspect]
     Active Substance: CYTARABINE
     Indication: Diffuse large B-cell lymphoma
     Dosage: UNK
     Route: 065
  44. CYTARABINE [Suspect]
     Active Substance: CYTARABINE
     Indication: Anaemia
  45. CYTARABINE [Suspect]
     Active Substance: CYTARABINE
     Indication: Hypertension
  46. CYTARABINE [Suspect]
     Active Substance: CYTARABINE
     Indication: Leukopenia
  47. CYTARABINE [Suspect]
     Active Substance: CYTARABINE
     Indication: Non-Hodgkin^s lymphoma
  48. CYCLOPHOSPHAMIDE [Suspect]
     Active Substance: CYCLOPHOSPHAMIDE
     Indication: Anaemia
     Dosage: UNK
     Route: 065
  49. CYCLOPHOSPHAMIDE [Suspect]
     Active Substance: CYCLOPHOSPHAMIDE
     Indication: Diffuse large B-cell lymphoma
     Dosage: UNK
     Route: 065
  50. CYCLOPHOSPHAMIDE [Suspect]
     Active Substance: CYCLOPHOSPHAMIDE
     Indication: Non-Hodgkin^s lymphoma
     Dosage: UNK
     Route: 065
  51. CYCLOPHOSPHAMIDE [Suspect]
     Active Substance: CYCLOPHOSPHAMIDE
     Indication: Hypertension
  52. CYCLOPHOSPHAMIDE [Suspect]
     Active Substance: CYCLOPHOSPHAMIDE
     Indication: Leukopenia
  53. CYTARABINE [Suspect]
     Active Substance: CYTARABINE
     Indication: Product used for unknown indication
     Route: 065
  54. CYTARABINE [Suspect]
     Active Substance: CYTARABINE
     Route: 065
  55. DOXORUBICIN HYDROCHLORIDE [Suspect]
     Active Substance: DOXORUBICIN HYDROCHLORIDE
     Indication: Leukopenia
     Dosage: 75 MG, 8 CYCLES
     Route: 042
     Dates: start: 20190513, end: 20191009
  56. DOXORUBICIN HYDROCHLORIDE [Suspect]
     Active Substance: DOXORUBICIN HYDROCHLORIDE
     Indication: Non-Hodgkin^s lymphoma
     Dosage: UNK
     Route: 058
  57. DOXORUBICIN HYDROCHLORIDE [Suspect]
     Active Substance: DOXORUBICIN HYDROCHLORIDE
     Dosage: UNK
     Route: 065
  58. DAPTOMYCIN [Suspect]
     Active Substance: DAPTOMYCIN
     Indication: Product used for unknown indication
     Dosage: 1 CYLCE 50MG X2
     Route: 042
     Dates: start: 20200110, end: 20200113
  59. EPOETIN ALFA [Suspect]
     Active Substance: ERYTHROPOIETIN
     Indication: Anaemia
     Dosage: 1 CYCLE
     Route: 058
     Dates: start: 20190523, end: 20200124
  60. EPOETIN ALFA [Suspect]
     Active Substance: ERYTHROPOIETIN
     Dosage: UNK
     Route: 058
     Dates: start: 20200124
  61. EPOETIN ALFA [Suspect]
     Active Substance: ERYTHROPOIETIN
     Dosage: UNK
     Route: 065
  62. EPOETIN ALFA [Suspect]
     Active Substance: ERYTHROPOIETIN
     Dosage: UNK
     Route: 065
  63. CISPLATIN\CYTARABINE\ETOPOSIDE\METHYLPREDNISOLONE (ESHAP) [Suspect]
     Active Substance: CISPLATIN\CYTARABINE\ETOPOSIDE\METHYLPREDNISOLONE (ESHAP)
     Indication: Diffuse large B-cell lymphoma
     Dosage: 2 CYCLES
     Route: 065
     Dates: start: 20191113, end: 20191223
  64. CISPLATIN\CYTARABINE\ETOPOSIDE\METHYLPREDNISOLONE (ESHAP) [Suspect]
     Active Substance: CISPLATIN\CYTARABINE\ETOPOSIDE\METHYLPREDNISOLONE (ESHAP)
     Dosage: UNK
     Route: 065
     Dates: start: 20191223
  65. ETOPOSIDE [Suspect]
     Active Substance: ETOPOSIDE
     Indication: Diffuse large B-cell lymphoma
     Dosage: 2 CYCLE
     Route: 042
     Dates: start: 20191119, end: 20200113
  66. ETOPOSIDE [Suspect]
     Active Substance: ETOPOSIDE
     Indication: Diffuse large B-cell lymphoma
     Dosage: 90.000MG
     Route: 042
     Dates: start: 20191119, end: 20200113
  67. ETOPOSIDE [Suspect]
     Active Substance: ETOPOSIDE
     Indication: Leukopenia
     Dosage: UNK
     Route: 058
  68. ETOPOSIDE [Suspect]
     Active Substance: ETOPOSIDE
     Indication: Anaemia
     Dosage: UNK
     Route: 065
  69. ETOPOSIDE [Suspect]
     Active Substance: ETOPOSIDE
     Indication: Non-Hodgkin^s lymphoma
     Dosage: UNK,VEPESID
     Route: 065
  70. ETOPOSIDE [Suspect]
     Active Substance: ETOPOSIDE
     Indication: Hypertension
  71. ETOPOSIDE [Suspect]
     Active Substance: ETOPOSIDE
     Indication: Non-Hodgkin^s lymphoma
  72. EPREX [Suspect]
     Active Substance: ERYTHROPOIETIN
     Indication: Anaemia
     Dosage: UNK UNK, CYCLIC (1 CYCLE)
     Route: 058
     Dates: start: 20190523, end: 20200124
  73. ERYTHROPOIETIN [Suspect]
     Active Substance: ERYTHROPOIETIN
     Indication: Diffuse large B-cell lymphoma
     Dosage: UNK
     Route: 065
  74. ERYTHROPOIETIN [Suspect]
     Active Substance: ERYTHROPOIETIN
     Indication: Anaemia
  75. ERYTHROPOIETIN [Suspect]
     Active Substance: ERYTHROPOIETIN
     Indication: Hypertension
  76. ERYTHROPOIETIN [Suspect]
     Active Substance: ERYTHROPOIETIN
     Indication: Leukopenia
  77. ERYTHROPOIETIN [Suspect]
     Active Substance: ERYTHROPOIETIN
     Indication: Non-Hodgkin^s lymphoma
  78. FILGRASTIM [Suspect]
     Active Substance: FILGRASTIM
     Indication: Anaemia
     Dosage: UNK
     Route: 058
     Dates: start: 20200117
  79. FILGRASTIM [Suspect]
     Active Substance: FILGRASTIM
     Indication: Non-Hodgkin^s lymphoma
     Dosage: UNK
     Route: 065
  80. FILGRASTIM [Suspect]
     Active Substance: FILGRASTIM
     Indication: Diffuse large B-cell lymphoma
     Dosage: UNK, UNKNOWN
     Route: 058
     Dates: start: 20190523, end: 20200117
  81. FILGRASTIM [Suspect]
     Active Substance: FILGRASTIM
     Indication: Hypertension
  82. FILGRASTIM [Suspect]
     Active Substance: FILGRASTIM
     Indication: Leukopenia
  83. HYALURONIDASE [Suspect]
     Active Substance: HYALURONIDASE\HYALURONIDASE (HUMAN RECOMBINANT)
     Indication: Product used for unknown indication
     Dosage: UNK
     Route: 065
  84. HYALURONIDASE [Suspect]
     Active Substance: HYALURONIDASE\HYALURONIDASE (HUMAN RECOMBINANT)
     Dosage: UNK
     Route: 065
  85. HYALURONIDASE (HUMAN RECOMBINANT) [Suspect]
     Active Substance: HYALURONIDASE (HUMAN RECOMBINANT)
     Dosage: UNK
     Route: 058
     Dates: start: 20190625
  86. HYALURONIDASE (HUMAN RECOMBINANT) [Suspect]
     Active Substance: HYALURONIDASE (HUMAN RECOMBINANT)
     Indication: Diffuse large B-cell lymphoma
     Dosage: UNK (3 CYCLES)
     Route: 058
     Dates: start: 20190513, end: 20190625
  87. LASIX [Suspect]
     Active Substance: FUROSEMIDE
     Indication: Hypertension
     Dosage: 1 CYCLE
     Route: 042
     Dates: start: 20200110, end: 20200113
  88. LASIX [Suspect]
     Active Substance: FUROSEMIDE
     Indication: Non-Hodgkin^s lymphoma
     Dosage: 1 CYCLE
     Route: 048
     Dates: start: 20200110, end: 20200112
  89. LASIX [Suspect]
     Active Substance: FUROSEMIDE
     Indication: Diffuse large B-cell lymphoma
     Dosage: UNK
     Route: 042
     Dates: start: 20200113
  90. LASIX [Suspect]
     Active Substance: FUROSEMIDE
     Indication: Anaemia
  91. LASIX [Suspect]
     Active Substance: FUROSEMIDE
     Indication: Leukopenia
  92. OMEPRAZOLE [Suspect]
     Active Substance: OMEPRAZOLE
     Indication: Non-Hodgkin^s lymphoma
     Dosage: 1 CYCLES TWICE
     Route: 042
     Dates: start: 20191223, end: 20200113
  93. OMEPRAZOLE [Suspect]
     Active Substance: OMEPRAZOLE
     Indication: Hypertension
     Dosage: UNK
     Route: 042
  94. OMEPRAZOLE [Suspect]
     Active Substance: OMEPRAZOLE
     Indication: Anaemia
     Dosage: UNK
     Route: 048
     Dates: start: 20191223, end: 20200113
  95. OMEPRAZOLE [Suspect]
     Active Substance: OMEPRAZOLE
     Indication: Diffuse large B-cell lymphoma
  96. OMEPRAZOLE [Suspect]
     Active Substance: OMEPRAZOLE
     Indication: Leukopenia
  97. MEROPENEM [Suspect]
     Active Substance: MEROPENEM
     Indication: Non-Hodgkin^s lymphoma
     Dosage: 1 CYCLE 2GX3
     Route: 042
     Dates: start: 20200103, end: 20200113
  98. MEROPENEM [Suspect]
     Active Substance: MEROPENEM
     Dosage: 2 G
     Route: 042
     Dates: start: 20200113
  99. MEROPENEM [Suspect]
     Active Substance: MEROPENEM
     Dosage: 1 CYCLE 2GX3
     Route: 042
     Dates: start: 20200103, end: 20200113
  100. METHYLPREDNISOLONE [Suspect]
     Active Substance: METHYLPREDNISOLONE
     Indication: Product used for unknown indication
     Dosage: UNK
     Route: 065
  101. NORVASC [Suspect]
     Active Substance: AMLODIPINE BESYLATE
     Indication: Product used for unknown indication
     Dosage: 1 CYCLE
     Route: 048
     Dates: start: 20190515, end: 20190516
  102. NORVASC [Suspect]
     Active Substance: AMLODIPINE BESYLATE
     Dosage: UNK
     Route: 058
  103. NORVASC [Suspect]
     Active Substance: AMLODIPINE BESYLATE
     Indication: Hypertension
     Dosage: UNK
     Route: 065
  104. NORVASC [Suspect]
     Active Substance: AMLODIPINE BESYLATE
     Dosage: UNK
     Route: 065
  105. OMEPRAZOLE [Suspect]
     Active Substance: OMEPRAZOLE
     Dosage: UNK
     Route: 042
     Dates: start: 20200113
  106. OMEPRAZOLE [Suspect]
     Active Substance: OMEPRAZOLE
     Indication: Non-Hodgkin^s lymphoma
     Dosage: UNK, UNKNOWN
     Route: 042
     Dates: start: 20191223, end: 20200113
  107. PREDNISONE [Suspect]
     Active Substance: PREDNISONE
     Indication: Anaemia
     Dosage: UNK
     Route: 065
  108. PREDNISONE [Suspect]
     Active Substance: PREDNISONE
     Indication: Hypertension
     Dosage: UNK
     Route: 065
  109. PREDNISONE [Suspect]
     Active Substance: PREDNISONE
     Indication: Non-Hodgkin^s lymphoma
     Dosage: UNK
     Route: 065
  110. PREDNISONE [Suspect]
     Active Substance: PREDNISONE
     Indication: Diffuse large B-cell lymphoma
  111. PREDNISONE [Suspect]
     Active Substance: PREDNISONE
     Indication: Leukopenia
  112. RITUXIMAB [Suspect]
     Active Substance: RITUXIMAB
     Indication: Diffuse large B-cell lymphoma
     Dosage: 8 CYCLES
     Route: 058
     Dates: start: 20190513, end: 20191013
  113. RITUXIMAB [Suspect]
     Active Substance: RITUXIMAB
     Dosage: 2 OT, CYCLIC
     Route: 042
     Dates: start: 20191223
  114. RITUXIMAB [Suspect]
     Active Substance: RITUXIMAB
     Dosage: 2 CYCLES
     Route: 042
     Dates: start: 20190113, end: 20191223
  115. RITUXIMAB [Suspect]
     Active Substance: RITUXIMAB
     Indication: Non-Hodgkin^s lymphoma
     Dosage: 8 CYCLES
     Route: 042
     Dates: start: 20190513, end: 20191013
  116. RITUXIMAB [Suspect]
     Active Substance: RITUXIMAB
     Dosage: 8 CYCLES
     Route: 042
     Dates: start: 20191113, end: 20191223
  117. RITUXIMAB [Suspect]
     Active Substance: RITUXIMAB
     Dosage: UNK
     Route: 065
  118. RITUXIMAB [Suspect]
     Active Substance: RITUXIMAB
     Dosage: UNK
     Route: 065
  119. RITUXIMAB [Suspect]
     Active Substance: RITUXIMAB
     Indication: Non-Hodgkin^s lymphoma
     Dosage: 6 CYCLES
     Route: 058
     Dates: start: 20190625, end: 20191009
  120. RITUXIMAB [Suspect]
     Active Substance: RITUXIMAB
     Indication: Leukopenia
     Dosage: 1 CYCLE
     Route: 058
     Dates: start: 20191113, end: 20191210
  121. RITUXIMAB [Suspect]
     Active Substance: RITUXIMAB
     Dosage: 1400 MG, CYCLIC (1 CYCLES)
     Route: 058
     Dates: start: 20191113, end: 20191210
  122. RITUXIMAB [Suspect]
     Active Substance: RITUXIMAB
     Indication: Anaemia
     Dosage: 650 MG, CYCLIC
     Route: 042
     Dates: start: 20200113
  123. RITUXIMAB [Suspect]
     Active Substance: RITUXIMAB
     Indication: Hypertension
     Dosage: 650 MG, CYCLIC (1 CYCLE)
     Route: 058
     Dates: start: 20191222, end: 20200113
  124. RITUXIMAB [Suspect]
     Active Substance: RITUXIMAB
     Indication: Diffuse large B-cell lymphoma
     Dosage: 1 OT, CYCLIC
     Route: 058
     Dates: start: 20191113, end: 20191210
  125. RITUXIMAB [Suspect]
     Active Substance: RITUXIMAB
     Dosage: 2 CYCLES
     Route: 042
     Dates: start: 20191113, end: 20191223
  126. RITUXIMAB [Suspect]
     Active Substance: RITUXIMAB
     Indication: Product used for unknown indication
     Dosage: 3 CYCLES,SOLUTION FOR INJECTION
     Route: 058
     Dates: start: 20190513, end: 20190625
  127. RITUXIMAB [Suspect]
     Active Substance: RITUXIMAB
     Dosage: UNK
     Route: 058
  128. RITUXIMAB [Suspect]
     Active Substance: RITUXIMAB
     Dosage: UNK
     Route: 065
  129. RITUXIMAB [Suspect]
     Active Substance: RITUXIMAB
     Dosage: UNK
     Route: 065
  130. VALACYCLOVIR HYDROCHLORIDE [Suspect]
     Active Substance: VALACYCLOVIR HYDROCHLORIDE
     Indication: Product used for unknown indication
     Route: 065
  131. VALTREX [Suspect]
     Active Substance: VALACYCLOVIR HYDROCHLORIDE
     Indication: Leukopenia
     Dosage: 500 G (1 CYCLE)
     Route: 048
     Dates: start: 20200108, end: 20200113
  132. VALTREX [Suspect]
     Active Substance: VALACYCLOVIR HYDROCHLORIDE
     Indication: Anaemia
     Dosage: 500 MG
     Route: 048
     Dates: start: 20190513, end: 20190516
  133. VALTREX [Suspect]
     Active Substance: VALACYCLOVIR HYDROCHLORIDE
     Indication: Diffuse large B-cell lymphoma
     Dosage: 500 MG
     Route: 048
     Dates: start: 20200108, end: 20200113
  134. VALTREX [Suspect]
     Active Substance: VALACYCLOVIR HYDROCHLORIDE
     Indication: Hypertension
     Dosage: UNK
     Route: 042
  135. VALTREX [Suspect]
     Active Substance: VALACYCLOVIR HYDROCHLORIDE
     Indication: Non-Hodgkin^s lymphoma
     Dosage: UNK
     Route: 065
  136. VALTREX [Suspect]
     Active Substance: VALACYCLOVIR HYDROCHLORIDE
     Dosage: UNK
     Route: 065
  137. VALTREX [Suspect]
     Active Substance: VALACYCLOVIR HYDROCHLORIDE
     Route: 058
  138. VALTREX [Suspect]
     Active Substance: VALACYCLOVIR HYDROCHLORIDE
     Route: 065
  139. VINCRISTINE SULFATE [Suspect]
     Active Substance: VINCRISTINE SULFATE
     Indication: Diffuse large B-cell lymphoma
     Dosage: UNK
     Route: 065
  140. VINCRISTINE SULFATE [Suspect]
     Active Substance: VINCRISTINE SULFATE
     Indication: Anaemia
  141. VINCRISTINE SULFATE [Suspect]
     Active Substance: VINCRISTINE SULFATE
     Indication: Hypertension
  142. VINCRISTINE SULFATE [Suspect]
     Active Substance: VINCRISTINE SULFATE
     Indication: Leukopenia
  143. VINCRISTINE SULFATE [Suspect]
     Active Substance: VINCRISTINE SULFATE
     Indication: Non-Hodgkin^s lymphoma

REACTIONS (7)
  - Diffuse large B-cell lymphoma refractory [Unknown]
  - Neoplasm progression [Unknown]
  - Disease progression [Unknown]
  - Product use in unapproved indication [Unknown]
  - Off label use [Unknown]
  - Product use in unapproved indication [Unknown]
  - Off label use [Unknown]

NARRATIVE: CASE EVENT DATE: 20190513
